FAERS Safety Report 7803953-4 (Version None)
Quarter: 2011Q4

REPORT INFORMATION
  Report Type: 
  Country: None (occurrence: None)
  Receive Date: 20111010
  Receipt Date: 20110927
  Transmission Date: 20120403
  Serious: Yes (Disabling)
  Sender: FDA-Public Use
  Company Number: GB-RANBAXY-2011R1-48649

PATIENT
  Age: 73 Year
  Sex: Male
  Weight: 76 kg

DRUGS (1)
  1. SIMVASTATIN [Suspect]
     Indication: BLOOD CHOLESTEROL INCREASED
     Dosage: UNK
     Route: 048
     Dates: start: 20090701, end: 20091021

REACTIONS (1)
  - DEPRESSED LEVEL OF CONSCIOUSNESS [None]
